FAERS Safety Report 5391614-3 (Version None)
Quarter: 2007Q3

REPORT INFORMATION
  Report Type: 
  Country: None (occurrence: None)
  Receive Date: 20070719
  Receipt Date: 20070710
  Transmission Date: 20080115
  Serious: Yes (Other)
  Sender: FDA-Public Use
  Company Number: US-PFIZER INC-2007058370

PATIENT
  Age: 61 Year
  Sex: Male
  Weight: 79.5 kg

DRUGS (5)
  1. LIPITOR [Suspect]
     Indication: BLOOD CHOLESTEROL
     Dosage: TEXT:10MG QD EVERYDAY TDD:10MG
     Dates: start: 19990101, end: 20070601
  2. CADUET [Suspect]
     Indication: BLOOD CHOLESTEROL
     Dosage: TEXT:5/10MG QD EVERYDAY TDD:5/10MG
  3. CADUET [Suspect]
     Indication: BLOOD PRESSURE
  4. TAMSULOSIN HCL [Concomitant]
  5. ACETYLSALICYLIC ACID SRT [Concomitant]

REACTIONS (5)
  - CONSTIPATION [None]
  - HEADACHE [None]
  - HYPERTENSION [None]
  - MUSCLE SPASMS [None]
  - PAIN IN EXTREMITY [None]
